FAERS Safety Report 12616480 (Version 1)
Quarter: 2016Q3

REPORT INFORMATION
  Report Type: Spontaneous
  Country: US (occurrence: US)
  Receive Date: 20160802
  Receipt Date: 20160802
  Transmission Date: 20161109
  Serious: Yes (Other)
  Sender: FDA-Public Use
  Company Number: US-SAOL THERAPEUTICS-2016SAO00289

PATIENT
  Age: 51 Year
  Sex: Female

DRUGS (2)
  1. BACLOFEN. [Suspect]
     Active Substance: BACLOFEN
     Indication: MULTIPLE SCLEROSIS
  2. BACLOFEN. [Suspect]
     Active Substance: BACLOFEN
     Indication: MUSCLE SPASTICITY
     Dosage: 749.3 ?G, \DAY

REACTIONS (12)
  - Therapeutic response decreased [Recovered/Resolved]
  - Mental status changes [Recovered/Resolved]
  - Weight decreased [Recovered/Resolved]
  - Implant site pain [Recovered/Resolved]
  - Rash [Recovered/Resolved]
  - Device dislocation [Recovered/Resolved]
  - Muscular weakness [Recovered/Resolved]
  - Pruritus [Recovered/Resolved]
  - Seizure [Recovered/Resolved]
  - Medical device discomfort [Recovered/Resolved]
  - Muscle spasticity [Unknown]
  - Device kink [Recovered/Resolved]

NARRATIVE: CASE EVENT DATE: 201402
